FAERS Safety Report 18193655 (Version 2)
Quarter: 2021Q1

REPORT INFORMATION
  Report Type: Other
  Country: CA (occurrence: CA)
  Receive Date: 20200825
  Receipt Date: 20210326
  Transmission Date: 20210419
  Serious: Yes (Other)
  Sender: FDA-Public Use
  Company Number: CA-COVIS PHARMA B.V.-2020COV00369

PATIENT
  Age: 73 Year
  Sex: Female

DRUGS (8)
  1. OMNARIS [Suspect]
     Active Substance: CICLESONIDE
  2. GABAPENTIN. [Suspect]
     Active Substance: GABAPENTIN
  3. LOPERAMIDE [Suspect]
     Active Substance: LOPERAMIDE
  4. MICARDIS [Suspect]
     Active Substance: TELMISARTAN
  5. SALBUTAMOL SULFATE [Suspect]
     Active Substance: ALBUTEROL SULFATE
  6. AMLODIPINE [Suspect]
     Active Substance: AMLODIPINE BESYLATE
  7. PREDNISONE. [Suspect]
     Active Substance: PREDNISONE
  8. GLYCOPYRRONIUM BROMIDE [Suspect]
     Active Substance: GLYCOPYRRONIUM

REACTIONS (6)
  - Dyspnoea [Unknown]
  - Sleep apnoea syndrome [Unknown]
  - Arthritis [Unknown]
  - Glaucoma [Unknown]
  - Asthma [Unknown]
  - Depression [Unknown]
